FAERS Safety Report 21216979 (Version 1)
Quarter: 2022Q3

REPORT INFORMATION
  Report Type: Spontaneous
  Country: US (occurrence: US)
  Receive Date: 20220816
  Receipt Date: 20220816
  Transmission Date: 20221027
  Serious: No
  Sender: FDA-Public Use
  Company Number: US-BAYER-2022A113940

PATIENT
  Age: 88 Year
  Sex: Male

DRUGS (10)
  1. ASTEPRO [Suspect]
     Active Substance: AZELASTINE HYDROCHLORIDE
     Indication: Hypersensitivity
     Dosage: ONE EACH NOSTRIL A DAY
     Route: 045
     Dates: start: 20220812, end: 20220814
  2. ASTEPRO [Suspect]
     Active Substance: AZELASTINE HYDROCHLORIDE
     Indication: Nasopharyngitis
  3. METOPROLOL [Concomitant]
     Active Substance: METOPROLOL
  4. SIMVASTATIN [Concomitant]
     Active Substance: SIMVASTATIN
  5. LISINOPRIL [Concomitant]
     Active Substance: LISINOPRIL
  6. AMLODIPINE [Concomitant]
     Active Substance: AMLODIPINE BESYLATE
  7. MONTELUKAST [Concomitant]
     Active Substance: MONTELUKAST SODIUM
  8. VITAMIN D NOS [Concomitant]
     Active Substance: VITAMIN D NOS
  9. ASPIRIN [Concomitant]
     Active Substance: ASPIRIN
  10. CALCITRATE PLUS D [Concomitant]

REACTIONS (1)
  - Diarrhoea [Unknown]
